FAERS Safety Report 9752785 (Version 1)
Quarter: 2013Q4

REPORT INFORMATION
  Report Type: Spontaneous
  Country: DK (occurrence: NL)
  Receive Date: 20131213
  Receipt Date: 20131213
  Transmission Date: 20140711
  Serious: Yes (Hospitalization)
  Sender: FDA-Public Use
  Company Number: NL-FRI-1000052208

PATIENT
  Age: 60 Year
  Sex: Female

DRUGS (3)
  1. LEXAPRO [Suspect]
     Indication: DEPRESSION
     Dosage: 10 MG
     Route: 048
  2. LEXAPRO [Suspect]
     Indication: ANXIETY
  3. LEXAPRO [Suspect]
     Indication: PANIC ATTACK

REACTIONS (1)
  - Epilepsy [Recovered/Resolved]
